FAERS Safety Report 5765524-3 (Version None)
Quarter: 2008Q2

REPORT INFORMATION
  Report Type: 
  Country: None (occurrence: None)
  Receive Date: 20080611
  Receipt Date: 20080605
  Transmission Date: 20081010
  Serious: Yes (Hospitalization)
  Sender: FDA-Public Use
  Company Number: CM-MERCK-0806USA00954

PATIENT
  Age: 40 Year
  Sex: Male
  Weight: 55 kg

DRUGS (1)
  1. STROMECTOL [Suspect]
     Indication: ONCHOCERCIASIS
     Route: 065
     Dates: start: 20080514

REACTIONS (7)
  - ANOREXIA [None]
  - APHASIA [None]
  - ARTHRALGIA [None]
  - ASTHENIA [None]
  - DEPRESSED LEVEL OF CONSCIOUSNESS [None]
  - PYREXIA [None]
  - URINARY INCONTINENCE [None]
